FAERS Safety Report 24795964 (Version 2)
Quarter: 2025Q1

REPORT INFORMATION
  Report Type: Spontaneous
  Country: US (occurrence: US)
  Receive Date: 20250101
  Receipt Date: 20250110
  Transmission Date: 20250409
  Serious: Yes (Life-Threatening, Hospitalization)
  Sender: TEVA
  Company Number: US-TEVA-VS-3280149

PATIENT
  Age: 28 Year
  Sex: Male

DRUGS (6)
  1. LIOTHYRONINE [Suspect]
     Active Substance: LIOTHYRONINE
     Indication: Muscle building therapy
     Route: 065
  2. CLENBUTEROL [Suspect]
     Active Substance: CLENBUTEROL
     Indication: Muscle building therapy
     Route: 065
  3. TESTOSTERONE [Suspect]
     Active Substance: TESTOSTERONE
     Indication: Muscle building therapy
     Route: 065
  4. ANASTROZOLE [Suspect]
     Active Substance: ANASTROZOLE
     Indication: Muscle building therapy
     Route: 065
  5. TESTOSTERONE [Suspect]
     Active Substance: TESTOSTERONE
     Indication: Muscle building therapy
     Route: 065
  6. CLOMIPHENE [Suspect]
     Active Substance: CLOMIPHENE
     Indication: Muscle building therapy
     Route: 065

REACTIONS (6)
  - Cardiac failure acute [Recovering/Resolving]
  - Myocarditis [Recovering/Resolving]
  - Hypothalamo-pituitary disorder [Recovering/Resolving]
  - Acute respiratory failure [Recovering/Resolving]
  - Cardiogenic shock [Recovering/Resolving]
  - Intentional product misuse [Unknown]
